FAERS Safety Report 9219352 (Version 2)
Quarter: 2013Q2

REPORT INFORMATION
  Report Type: Spontaneous
  Country: US (occurrence: None)
  Receive Date: 20120827
  Receipt Date: 20130225
  Transmission Date: 20140414
  Serious: Yes (Other)
  Sender: FDA-Public Use
  Company Number: 356742

PATIENT
  Age: 65 Year
  Sex: Male
  Weight: 107.9 kg

DRUGS (8)
  1. VICTOZA (LIRAGLUTIDE) SOLUTION FOR INJECTION, 6MG/ML [Suspect]
     Indication: TYPE 2 DIABETES MELLITUS
     Route: 058
     Dates: start: 201103, end: 20120724
  2. AMLODIPINE (AMLODIPINE) [Concomitant]
  3. ASPIRIN (ACETYLSALICYLIC ACID) [Concomitant]
  4. FENOFIBRATE (FENOFIBRATE) (FENOFIBRATE) [Concomitant]
  5. FISH OIL (FISH OIL) [Concomitant]
  6. FOLIC ACID (FOLIC ACID) [Concomitant]
  7. GABAPENTIN (GABAPENTIN) [Concomitant]
  8. HYDROCODONE (HYDROCODONE) [Concomitant]

REACTIONS (1)
  - Pancreatitis acute [None]
